FAERS Safety Report 8485842-8 (Version None)
Quarter: 2012Q3

REPORT INFORMATION
  Report Type: 
  Country: None (occurrence: None)
  Receive Date: 20120703
  Receipt Date: 20120629
  Transmission Date: 20120928
  Serious: Yes (Other)
  Sender: FDA-Public Use
  Company Number: PHHY2012JP056369

PATIENT
  Age: 30 Year
  Sex: Female

DRUGS (5)
  1. MYCOPHENOLATE MOFETIL [Concomitant]
     Dosage: UNK UKN, UNK
  2. METHYLPREDNISOLONE [Concomitant]
     Dosage: UNK UKN, UNK
  3. BASILIXIMAB [Suspect]
     Indication: RENAL TRANSPLANT
     Dosage: UNK UKN, UNK
  4. TACROLIMUS [Concomitant]
     Dosage: UNK UKN, UNK
  5. RITUXIMAB [Concomitant]
     Dosage: UNK UKN, UNK

REACTIONS (4)
  - TUBULOINTERSTITIAL NEPHRITIS [None]
  - GRANULOMA [None]
  - COMPLICATIONS OF TRANSPLANTED KIDNEY [None]
  - KIDNEY TRANSPLANT REJECTION [None]
